FAERS Safety Report 4552670-5 (Version None)
Quarter: 2005Q1

REPORT INFORMATION
  Report Type: 
  Country: None (occurrence: None)
  Receive Date: 20050114
  Receipt Date: 20030830
  Transmission Date: 20050727
  Serious: Yes (Other)
  Sender: FDA-Public Use
  Company Number: PHBS2003CO14720

PATIENT
  Age: 31 Year
  Sex: Female

DRUGS (1)
  1. ZELMAC [Suspect]
     Indication: IRRITABLE BOWEL SYNDROME
     Dosage: UNK, UNK
     Route: 048
     Dates: start: 20030601, end: 20031211

REACTIONS (3)
  - DIARRHOEA [None]
  - FOOT OPERATION [None]
  - OSTEOARTHRITIS [None]
